FAERS Safety Report 18198410 (Version 1)
Quarter: 2020Q3

REPORT INFORMATION
  Report Type: Spontaneous
  Country: CN (occurrence: CN)
  Receive Date: 20200826
  Receipt Date: 20200826
  Transmission Date: 20201103
  Serious: Yes (Other)
  Sender: FDA-Public Use
  Company Number: CN-ROCHE-2664658

PATIENT
  Age: 48 Year
  Sex: Female
  Weight: 75 kg

DRUGS (5)
  1. HERCEPTIN [Suspect]
     Active Substance: TRASTUZUMAB
     Indication: HER2 POSITIVE BREAST CANCER
     Dosage: THE FIRST DOSE WAS 8MG/KG, THE FOLLOWED DOES WAS 6MG/KG
     Route: 065
  2. PACLITAXEL ALBUMIN [Concomitant]
     Active Substance: PACLITAXEL
  3. CAPECITABINE. [Concomitant]
     Active Substance: CAPECITABINE
     Route: 048
  4. LAPATINIB [Concomitant]
     Active Substance: LAPATINIB
  5. PYROTINIB [Concomitant]
     Active Substance: PYROTINIB

REACTIONS (2)
  - Gastric haemorrhage [Unknown]
  - Drug resistance [Unknown]

NARRATIVE: CASE EVENT DATE: 2019
